FAERS Safety Report 20311161 (Version 5)
Quarter: 2022Q2

REPORT INFORMATION
  Report Type: Report from Study
  Country: IL (occurrence: IL)
  Receive Date: 20220107
  Receipt Date: 20220630
  Transmission Date: 20220721
  Serious: Yes (Hospitalization)
  Sender: FDA-Public Use
  Company Number: IL-ABBVIE-22P-082-4219958-00

PATIENT
  Age: 50 Year
  Sex: Male

DRUGS (5)
  1. VENETOCLAX [Suspect]
     Active Substance: VENETOCLAX
     Indication: Myelodysplastic syndrome
     Dosage: DAYS 1  14 OF EACH 28-DAY CYCLE
     Route: 048
     Dates: start: 20211020
  2. AZACITIDINE [Suspect]
     Active Substance: AZACITIDINE
     Indication: Myelodysplastic syndrome
     Dosage: 7 DAYS WITHIN THE FIRST 9 CALENDAR DAYS PER 28-DAY CYCLE.
     Route: 042
     Dates: start: 20211020
  3. ZOFRAN [Concomitant]
     Active Substance: ONDANSETRON HYDROCHLORIDE
     Indication: Nausea
     Route: 048
     Dates: start: 20211020
  4. RECTOZORIN [Concomitant]
     Indication: Haemorrhoids
     Route: 061
     Dates: start: 20211230, end: 20220110
  5. LIDOCAINE HYDROCHLORIDE [Concomitant]
     Active Substance: LIDOCAINE HYDROCHLORIDE
     Indication: Haemorrhoids
     Route: 061
     Dates: start: 20211230, end: 20220110

REACTIONS (3)
  - Platelet count decreased [Not Recovered/Not Resolved]
  - Febrile neutropenia [Recovered/Resolved]
  - Enterococcal infection [Not Recovered/Not Resolved]

NARRATIVE: CASE EVENT DATE: 20211230
